FAERS Safety Report 7532090-1 (Version None)
Quarter: 2011Q2

REPORT INFORMATION
  Report Type: 
  Country: None (occurrence: None)
  Receive Date: 20110608
  Receipt Date: 20110601
  Transmission Date: 20111010
  Serious: No
  Sender: FDA-Public Use
  Company Number: US-PFIZER INC-2011120572

PATIENT
  Sex: Female

DRUGS (1)
  1. PREMARIN [Suspect]
     Route: 067

REACTIONS (4)
  - VULVOVAGINAL PAIN [None]
  - HAEMORRHOIDS [None]
  - ANORECTAL DISCOMFORT [None]
  - ABDOMINAL PAIN LOWER [None]
